FAERS Safety Report 5361509-X (Version None)
Quarter: 2007Q2

REPORT INFORMATION
  Report Type: 
  Country: None (occurrence: None)
  Receive Date: 20070619
  Receipt Date: 20070614
  Transmission Date: 20071010
  Serious: Yes (Death)
  Sender: FDA-Public Use
  Company Number: PHFR2007GB01904

PATIENT

DRUGS (1)
  1. CARBAMAZEPINE [Suspect]
     Route: 065

REACTIONS (1)
  - DEATH [None]
